FAERS Safety Report 8421786-5 (Version None)
Quarter: 2012Q2

REPORT INFORMATION
  Report Type: 
  Country: None (occurrence: None)
  Receive Date: 20120608
  Receipt Date: 20120530
  Transmission Date: 20120825
  Serious: Yes (Hospitalization, Other)
  Sender: FDA-Public Use
  Company Number: NZ-NOVOPROD-349971

PATIENT
  Age: 42 Year
  Sex: Male
  Weight: 111 kg

DRUGS (4)
  1. NOVORAPID [Suspect]
     Indication: TYPE 1 DIABETES MELLITUS
     Dosage: 12 U(4 UNITS THREE TIMES A DAY WITH MEALS), QD
     Route: 058
     Dates: start: 20120418, end: 20120419
  2. METFORMIN HCL [Concomitant]
     Dosage: 1 G, QD
     Route: 048
  3. LANTUS [Concomitant]
  4. ACTRAPID [Suspect]
     Indication: TYPE 1 DIABETES MELLITUS
     Dosage: 12 U(4 UNITS THREE TIMES A DAY), QD
     Route: 058
     Dates: start: 20120419, end: 20120419

REACTIONS (1)
  - SWOLLEN TONGUE [None]
